FAERS Safety Report 4949189-6 (Version None)
Quarter: 2006Q1

REPORT INFORMATION
  Report Type: 
  Country: None (occurrence: None)
  Receive Date: 20060321
  Receipt Date: 20060302
  Transmission Date: 20060701
  Serious: Yes (Other)
  Sender: FDA-Public Use
  Company Number: JP-JNJFOC-20060301702

PATIENT
  Age: 63 Year
  Sex: Male

DRUGS (2)
  1. ITRIZOLE [Suspect]
     Indication: ASPERGILLOSIS
     Route: 048
     Dates: start: 20041001
  2. CLARITHROMYCIN [Concomitant]

REACTIONS (1)
  - ATRIOVENTRICULAR BLOCK [None]
